FAERS Safety Report 8390717-9 (Version None)
Quarter: 2012Q2

REPORT INFORMATION
  Report Type: 
  Country: None (occurrence: None)
  Receive Date: 20120529
  Receipt Date: 20120525
  Transmission Date: 20120825
  Serious: Yes (Death, Hospitalization)
  Sender: FDA-Public Use
  Company Number: NL-GENZYME-CLOF-1001898

PATIENT
  Sex: Male
  Weight: 87 kg

DRUGS (9)
  1. VANCOMYCIN [Concomitant]
     Dosage: UNK
     Route: 065
     Dates: start: 20111104, end: 20111108
  2. METHOTREXATE [Suspect]
     Indication: ACUTE LYMPHOCYTIC LEUKAEMIA
     Dosage: UNK
     Route: 065
  3. VANCOMYCIN [Concomitant]
     Indication: SEPSIS
     Dosage: UNK
     Route: 065
     Dates: start: 20111028, end: 20111102
  4. PEG-ASPARAGINASE [Suspect]
     Indication: ACUTE LYMPHOCYTIC LEUKAEMIA
     Dosage: 2100 U, UNK
     Route: 042
     Dates: start: 20111015, end: 20111015
  5. DAUNORUBICIN HCL [Suspect]
     Indication: ACUTE LYMPHOCYTIC LEUKAEMIA
     Dosage: 84 MG, UNK
     Route: 042
     Dates: start: 20111022, end: 20111029
  6. VINCRISTINE [Suspect]
     Indication: ACUTE LYMPHOCYTIC LEUKAEMIA
     Dosage: 2 MG, UNK
     Route: 042
     Dates: start: 20111015, end: 20111029
  7. CLOFARABINE [Suspect]
     Indication: ACUTE LYMPHOCYTIC LEUKAEMIA
     Dosage: 63 MG, QDX5
     Route: 042
     Dates: start: 20111008, end: 20111012
  8. PREDNISOLONE [Suspect]
     Indication: ACUTE LYMPHOCYTIC LEUKAEMIA
     Dosage: 80 MG, UNK
     Route: 048
     Dates: start: 20111008, end: 20111105
  9. AMOXICILLIN [Concomitant]
     Indication: SEPSIS
     Dosage: UNK
     Route: 065
     Dates: start: 20111102, end: 20111104

REACTIONS (4)
  - SEPSIS [None]
  - RENAL FAILURE [None]
  - HEPATIC FAILURE [None]
  - PSEUDOMONAS INFECTION [None]
